FAERS Safety Report 16059771 (Version 1)
Quarter: 2019Q1

REPORT INFORMATION
  Report Type: Spontaneous
  Country: US (occurrence: US)
  Receive Date: 20190311
  Receipt Date: 20190311
  Transmission Date: 20190418
  Serious: Yes (Hospitalization, Other)
  Sender: FDA-Public Use
  Company Number: US-UNITED THERAPEUTICS-UNT-2019-004404

PATIENT
  Age: 64 Year
  Sex: Male

DRUGS (1)
  1. TYVASO [Suspect]
     Active Substance: TREPROSTINIL
     Indication: PULMONARY ARTERIAL HYPERTENSION
     Dosage: 42 ?G, QID
     Dates: start: 20181214

REACTIONS (7)
  - Joint swelling [Unknown]
  - Dyspnoea [Unknown]
  - Fluid retention [Unknown]
  - Blood pressure decreased [Unknown]
  - Cough [Unknown]
  - Neoplasm malignant [Unknown]
  - Chest discomfort [Unknown]

NARRATIVE: CASE EVENT DATE: 20190305
